FAERS Safety Report 10766728 (Version 1)
Quarter: 2015Q1

REPORT INFORMATION
  Report Type: Spontaneous
  Country: DE (occurrence: DE)
  Receive Date: 20150205
  Receipt Date: 20150205
  Transmission Date: 20150721
  Serious: Yes (Other)
  Sender: FDA-Public Use
  Company Number: GXKR2015DE000814

PATIENT

DRUGS (3)
  1. FOLSAEURE [Concomitant]
     Active Substance: FOLIC ACID
     Indication: PROPHYLAXIS OF NEURAL TUBE DEFECT
     Dosage: 0.4 [MG/D ]
     Route: 048
  2. CLOZAPINE. [Suspect]
     Active Substance: CLOZAPINE
     Indication: SCHIZOPHRENIA
     Dosage: IN THE BEGINNING 250 MG/D; FROM GW 5+2 UNTIL GW 35 200 MG/D, FROM GW 35 UNTIL DELIVERY 175 MG/D
     Route: 048
     Dates: start: 20140115, end: 20141023
  3. PROTAPHANE [Concomitant]
     Active Substance: INSULIN HUMAN
     Indication: GESTATIONAL DIABETES
     Dosage: 40 [IU/D ]/ IN THE BEGINNING LOWER DOSAGE
     Route: 058

REACTIONS (1)
  - Gestational diabetes [Recovered/Resolved]
